FAERS Safety Report 9145600 (Version 1)
Quarter: 2013Q1

REPORT INFORMATION
  Report Type: Spontaneous
  Country: US (occurrence: None)
  Receive Date: 20130227
  Receipt Date: 20130227
  Transmission Date: 20140127
  Serious: Yes (Other)
  Sender: FDA-Public Use
  Company Number: None

PATIENT
  Age: 5 Year
  Sex: Male
  Weight: 24.7 kg

DRUGS (2)
  1. MONTELUKAST SODIUM [Suspect]
     Indication: RHINITIS ALLERGIC
     Dosage: SINGULAR 1XDAY PO 4MG GRANUELS?HAS USED SINGULAR NAME BRAND PREVIOUS
     Route: 048
  2. MONTELUKAST SODIUM [Suspect]
     Indication: TONSILLAR HYPERTROPHY
     Dosage: SINGULAR 1XDAY PO 4MG GRANUELS?HAS USED SINGULAR NAME BRAND PREVIOUS
     Route: 048

REACTIONS (2)
  - Product substitution issue [None]
  - Product taste abnormal [None]
